FAERS Safety Report 4341520-8 (Version None)
Quarter: 2004Q2

REPORT INFORMATION
  Report Type: 
  Country: None (occurrence: None)
  Receive Date: 20040415
  Receipt Date: 20040330
  Transmission Date: 20050107
  Serious: Yes (Hospitalization)
  Sender: FDA-Public Use
  Company Number: EWC040338658

PATIENT
  Age: 74 Year
  Sex: Female

DRUGS (9)
  1. HUMULIN N [Suspect]
     Indication: DIABETES MELLITUS INSULIN-DEPENDENT
     Dosage: 35 IU DAY
     Dates: start: 20000101
  2. HUMULIN R [Suspect]
     Indication: DIABETES MELLITUS INSULIN-DEPENDENT
     Dosage: 16 IU DAY
     Dates: start: 20000101
  3. CHINOTAL (PENTOXIFYLLINE) [Concomitant]
  4. DIGOXIN [Concomitant]
  5. ASTRIX (ACETYLSALICYLIC ACID) [Concomitant]
  6. CORINFAR RETARD [Concomitant]
  7. DIAPREL (GLICLAZIDE) [Concomitant]
  8. SEROPRAM (CITALOPRAM HYDROBROMIDE) [Concomitant]
  9. NIFEDIPINE [Concomitant]

REACTIONS (5)
  - BLOOD GLUCOSE INCREASED [None]
  - INADEQUATE DIET [None]
  - MUSCLE TWITCHING [None]
  - PHARMACEUTICAL PRODUCT COMPLAINT [None]
  - TREATMENT NONCOMPLIANCE [None]
